FAERS Safety Report 20230534 (Version 2)
Quarter: 2022Q1

REPORT INFORMATION
  Report Type: Spontaneous
  Country: US (occurrence: US)
  Receive Date: 20211227
  Receipt Date: 20220117
  Transmission Date: 20220424
  Serious: No
  Sender: FDA-Public Use
  Company Number: US-AMGEN-USASP2021204082

PATIENT
  Age: 70 Year
  Sex: Male
  Weight: 84.2 kg

DRUGS (2)
  1. KYPROLIS [Suspect]
     Active Substance: CARFILZOMIB
     Indication: Plasma cell myeloma
     Dosage: 58 MILLIGRAM
     Route: 065
     Dates: start: 20211018
  2. KYPROLIS [Suspect]
     Active Substance: CARFILZOMIB
     Indication: Plasmacytoma

REACTIONS (1)
  - Product preparation error [Unknown]

NARRATIVE: CASE EVENT DATE: 20211221
